FAERS Safety Report 19924247 (Version 1)
Quarter: 2021Q4

REPORT INFORMATION
  Report Type: Spontaneous
  Country: IT (occurrence: IT)
  Receive Date: 20211006
  Receipt Date: 20211006
  Transmission Date: 20220303
  Serious: Yes (Other)
  Sender: FDA-Public Use
  Company Number: IT-MLMSERVICE-20210917-3112296-1

PATIENT
  Age: 67 Year
  Sex: Male

DRUGS (3)
  1. TIGECYCLINE [Suspect]
     Active Substance: TIGECYCLINE
     Indication: Bacterial infection
     Dosage: UNK
  2. GENTAMICIN [Suspect]
     Active Substance: GENTAMICIN
     Indication: Bacterial infection
     Dosage: UNK
  3. COLISTIN [Suspect]
     Active Substance: COLISTIN
     Indication: Bacterial infection
     Dosage: UNK

REACTIONS (3)
  - Chronic kidney disease [Unknown]
  - Off label use [Unknown]
  - Drug effective for unapproved indication [Unknown]
